FAERS Safety Report 8474176-3 (Version None)
Quarter: 2012Q2

REPORT INFORMATION
  Report Type: 
  Country: None (occurrence: None)
  Receive Date: 20120628
  Receipt Date: 20120622
  Transmission Date: 20120825
  Serious: No
  Sender: FDA-Public Use
  Company Number: US-PFIZER INC-2012151458

PATIENT

DRUGS (5)
  1. CYMBALTA [Suspect]
     Dosage: UNK
  2. CODEINE SULFATE [Suspect]
     Dosage: UNK
  3. ABILIFY [Suspect]
     Dosage: UNK
  4. METFORMIN HCL [Suspect]
     Dosage: UNK
  5. LYRICA [Suspect]
     Dosage: UNK

REACTIONS (1)
  - DRUG HYPERSENSITIVITY [None]
